FAERS Safety Report 6392850-X (Version None)
Quarter: 2009Q4

REPORT INFORMATION
  Report Type: 
  Country: None (occurrence: None)
  Receive Date: 20091007
  Receipt Date: 20090901
  Transmission Date: 20100525
  Serious: No
  Sender: FDA-Public Use
  Company Number: US-ALLERGAN-0912244US

PATIENT
  Age: 40 Year
  Sex: Female

DRUGS (2)
  1. LATISSE [Suspect]
     Indication: GROWTH OF EYELASHES
     Dosage: UNK
     Route: 061
     Dates: start: 20090801
  2. ELASTADERM [Suspect]
     Indication: PROPHYLAXIS
     Dosage: UNK
     Route: 061

REACTIONS (1)
  - RASH ERYTHEMATOUS [None]
